FAERS Safety Report 15839786 (Version 1)
Quarter: 2019Q1

REPORT INFORMATION
  Report Type: Spontaneous
  Country: TR (occurrence: TR)
  Receive Date: 20190117
  Receipt Date: 20190117
  Transmission Date: 20190417
  Serious: Yes (Other)
  Sender: FDA-Public Use
  Company Number: TR-GLAXOSMITHKLINE-TR2019GSK005449

PATIENT
  Age: 60 Year
  Sex: Male

DRUGS (1)
  1. CEFUROXIME SODIUM. [Suspect]
     Active Substance: CEFUROXIME SODIUM
     Indication: PROPHYLAXIS
     Dosage: UNK, 1 MG/0.1 ML, INTRACAMERAL

REACTIONS (14)
  - Retinal neovascularisation [Unknown]
  - Visual impairment [Not Recovered/Not Resolved]
  - Retinal infarction [Not Recovered/Not Resolved]
  - Retinal toxicity [Recovered/Resolved]
  - Optic atrophy [Not Recovered/Not Resolved]
  - Retinal vasculitis [Unknown]
  - Corneal oedema [Recovered/Resolved]
  - Visual acuity reduced [Not Recovered/Not Resolved]
  - Retinal haemorrhage [Recovered/Resolved]
  - Vitritis [Unknown]
  - Optic nerve infarction [Unknown]
  - Toxicity to various agents [Unknown]
  - Anterior chamber cell [Recovered/Resolved]
  - Vitreous disorder [Recovered/Resolved]
